FAERS Safety Report 5527331-6 (Version None)
Quarter: 2007Q4

REPORT INFORMATION
  Report Type: 
  Country: None (occurrence: None)
  Receive Date: 20071128
  Receipt Date: 20071121
  Transmission Date: 20080405
  Serious: Yes (Life-Threatening, Hospitalization, Other)
  Sender: FDA-Public Use
  Company Number: B0496495A

PATIENT
  Age: 88 Year
  Sex: Male
  Weight: 65 kg

DRUGS (9)
  1. AMOXICILLIN [Suspect]
     Dosage: 750MG PER DAY
     Route: 048
     Dates: start: 20071101, end: 20071105
  2. WARFARIN SODIUM [Suspect]
     Dosage: 5MG PER DAY
     Route: 048
     Dates: start: 20020101, end: 20071114
  3. ATENOLOL [Concomitant]
     Route: 048
  4. LEVOTHYROXINE SODIUM [Concomitant]
     Route: 048
  5. THIAMINE [Concomitant]
     Route: 048
  6. DIGOXIN [Concomitant]
     Route: 048
  7. CYANOCOBALAMIN [Concomitant]
     Dosage: 100MCG PER DAY
     Route: 048
  8. FINASTERIDE [Concomitant]
     Dosage: 5MG PER DAY
     Route: 048
  9. RAMIPRIL [Concomitant]
     Dosage: 5MG PER DAY
     Route: 048

REACTIONS (4)
  - CONFUSIONAL STATE [None]
  - DRUG INTERACTION [None]
  - INCORRECT DOSE ADMINISTERED [None]
  - INTERNATIONAL NORMALISED RATIO INCREASED [None]
